FAERS Safety Report 7557935-0 (Version None)
Quarter: 2011Q2

REPORT INFORMATION
  Report Type: 
  Country: None (occurrence: None)
  Receive Date: 20110620
  Receipt Date: 20110615
  Transmission Date: 20111010
  Serious: Yes (Hospitalization)
  Sender: FDA-Public Use
  Company Number: B0725210A

PATIENT
  Sex: Female
  Weight: 88 kg

DRUGS (8)
  1. DOCETAXEL [Suspect]
     Indication: BREAST CANCER
     Dosage: 145MG CYCLIC
     Route: 042
     Dates: start: 20110318
  2. CARBOPLATIN [Suspect]
     Indication: BREAST CANCER
     Dosage: 750MG CYCLIC
     Route: 042
     Dates: start: 20110318
  3. CYCLIZINE [Concomitant]
     Dosage: 150MG PER DAY
     Route: 048
     Dates: start: 20110325, end: 20110609
  4. QUININE SULFATE [Concomitant]
     Dosage: 300MG PER DAY
     Route: 048
     Dates: start: 20110429
  5. NEULASTA [Concomitant]
     Dosage: 6MG PER DAY
     Route: 058
     Dates: start: 20110310
  6. HERCEPTIN [Suspect]
     Indication: BREAST CANCER
     Dosage: 567MG CYCLIC
     Route: 042
     Dates: start: 20110318
  7. LAPATINIB [Suspect]
     Indication: BREAST CANCER
     Dosage: 1000MG PER DAY
     Route: 048
     Dates: start: 20110319
  8. LANSOPRAZOLE [Concomitant]
     Dosage: 30MG PER DAY
     Route: 048
     Dates: start: 20110310

REACTIONS (2)
  - DEHYDRATION [None]
  - DIARRHOEA [None]
